FAERS Safety Report 18649275 (Version 9)
Quarter: 2024Q2

REPORT INFORMATION
  Report Type: Spontaneous
  Country: US (occurrence: US)
  Receive Date: 20201222
  Receipt Date: 20240417
  Transmission Date: 20240716
  Serious: Yes (Other)
  Sender: FDA-Public Use
  Company Number: US-PFIZER INC-2020504599

PATIENT
  Age: 71 Year
  Sex: Female

DRUGS (2)
  1. XELJANZ XR [Suspect]
     Active Substance: TOFACITINIB CITRATE
     Indication: Rheumatoid arthritis
     Dosage: 11 MG
     Route: 048
     Dates: end: 202012
  2. XELJANZ XR [Suspect]
     Active Substance: TOFACITINIB CITRATE
     Dosage: 11 MG, 1X/DAY
     Route: 048
     Dates: start: 20210701

REACTIONS (7)
  - Basal cell carcinoma [Unknown]
  - Spinal operation [Unknown]
  - COVID-19 [Unknown]
  - Bronchitis [Unknown]
  - Ear pain [Unknown]
  - Osteoporosis [Unknown]
  - Back injury [Unknown]

NARRATIVE: CASE EVENT DATE: 20230301
